FAERS Safety Report 13468740 (Version 1)
Quarter: 2017Q2

REPORT INFORMATION
  Report Type: Spontaneous
  Country: DE (occurrence: DE)
  Receive Date: 20170421
  Receipt Date: 20170421
  Transmission Date: 20170830
  Serious: Yes (Death, Other)
  Sender: FDA-Public Use
  Company Number: DE-TEVA-760581GER

PATIENT
  Age: 22 Year
  Sex: Male

DRUGS (8)
  1. LORAZEPAM. [Suspect]
     Active Substance: LORAZEPAM
     Route: 065
  2. QUETIAPINE. [Suspect]
     Active Substance: QUETIAPINE
     Route: 065
  3. FLUOXETINE [Suspect]
     Active Substance: FLUOXETINE HYDROCHLORIDE
     Route: 065
  4. ETIZOLAM [Suspect]
     Active Substance: ETIZOLAM
     Route: 065
  5. TRIAZOLAM. [Suspect]
     Active Substance: TRIAZOLAM
     Route: 065
  6. PREGABALIN. [Suspect]
     Active Substance: PREGABALIN
     Route: 065
  7. OLANZAPINE. [Suspect]
     Active Substance: OLANZAPINE
     Route: 065
  8. PIPAMPERONE [Suspect]
     Active Substance: PIPAMPERONE
     Route: 065

REACTIONS (7)
  - Pulmonary oedema [Unknown]
  - Fall [Unknown]
  - Overdose [Unknown]
  - Aspiration [Fatal]
  - Humerus fracture [Unknown]
  - Loss of consciousness [Fatal]
  - Haematoma [Unknown]
